FAERS Safety Report 5684791-8 (Version None)
Quarter: 2008Q1

REPORT INFORMATION
  Report Type: 
  Country: None (occurrence: None)
  Receive Date: 20080328
  Receipt Date: 20070924
  Transmission Date: 20080703
  Serious: Yes (Other)
  Sender: FDA-Public Use
  Company Number: US-BRISTOL-MYERS SQUIBB COMPANY-13917570

PATIENT

DRUGS (2)
  1. ERBITUX [Suspect]
     Indication: COLORECTAL CANCER
     Dates: start: 20070901
  2. IRINOTECAN HCL [Suspect]
     Indication: COLORECTAL CANCER
     Dates: start: 20070901

REACTIONS (1)
  - PNEUMONITIS [None]
